FAERS Safety Report 8597762-9 (Version None)
Quarter: 2012Q3

REPORT INFORMATION
  Report Type: 
  Country: None (occurrence: None)
  Receive Date: 20120816
  Receipt Date: 20120813
  Transmission Date: 20120928
  Serious: Yes (Hospitalization, Other)
  Sender: FDA-Public Use
  Company Number: PHHY2012AU026987

PATIENT
  Sex: Male

DRUGS (4)
  1. SANDOSTATIN LAR [Suspect]
     Dosage: 30 MG, UNK
     Route: 030
     Dates: end: 20120716
  2. SANDOSTATIN LAR [Suspect]
     Indication: CARCINOID SYNDROME
     Dosage: 30 MG, UNK
     Route: 030
     Dates: end: 20120327
  3. SANDOSTATIN LAR [Suspect]
     Dosage: 30 MG, UNK
     Route: 030
     Dates: end: 20120522
  4. SANDOSTATIN LAR [Suspect]
     Dosage: 30 MG, UNK
     Route: 030
     Dates: end: 20120424

REACTIONS (14)
  - EATING DISORDER [None]
  - DYSPEPSIA [None]
  - HAEMOPTYSIS [None]
  - MEMORY IMPAIRMENT [None]
  - DIZZINESS [None]
  - DISTURBANCE IN ATTENTION [None]
  - BACK PAIN [None]
  - VOMITING [None]
  - LETHARGY [None]
  - DECREASED APPETITE [None]
  - WEIGHT DECREASED [None]
  - SOMNOLENCE [None]
  - DIARRHOEA [None]
  - AGEUSIA [None]
